FAERS Safety Report 10721602 (Version 1)
Quarter: 2015Q1

REPORT INFORMATION
  Report Type: Report from Study
  Country: BR (occurrence: BR)
  Receive Date: 20150119
  Receipt Date: 20150119
  Transmission Date: 20150721
  Serious: Yes (Disabling)
  Sender: FDA-Public Use
  Company Number: BR-ABBVIE-15K-020-1332609-00

PATIENT
  Age: 72 Year
  Sex: Male
  Weight: 75 kg

DRUGS (1)
  1. HUMIRA [Suspect]
     Active Substance: ADALIMUMAB
     Indication: PRODUCT USED FOR UNKNOWN INDICATION
     Route: 058
     Dates: start: 20110101

REACTIONS (18)
  - Weight decreased [Unknown]
  - Red blood cell sedimentation rate abnormal [Unknown]
  - Nervousness [Unknown]
  - Colitis ulcerative [Unknown]
  - Gastrointestinal pain [Unknown]
  - Pain in extremity [Recovering/Resolving]
  - Stress [Unknown]
  - Abasia [Recovering/Resolving]
  - Arthralgia [Recovering/Resolving]
  - Fatigue [Recovering/Resolving]
  - Chest pain [Recovered/Resolved]
  - Gastrointestinal infection [Recovering/Resolving]
  - Activities of daily living impaired [Unknown]
  - Neck pain [Recovering/Resolving]
  - Spinal pain [Recovering/Resolving]
  - Back pain [Recovering/Resolving]
  - Dysstasia [Unknown]
  - Haematochezia [Recovering/Resolving]

NARRATIVE: CASE EVENT DATE: 201401
